FAERS Safety Report 8834313 (Version 2)
Quarter: 2012Q4

REPORT INFORMATION
  Report Type: 
  Country: BR (occurrence: BR)
  Receive Date: 20121010
  Receipt Date: 20121212
  Transmission Date: 20130627
  Serious: Yes (Other)
  Sender: FDA-Public Use
  Company Number: BR-ASTRAZENECA-2012SE76781

PATIENT
  Age: 67 Year
  Sex: Female

DRUGS (3)
  1. ATACAND [Suspect]
     Indication: BLOOD PRESSURE ABNORMAL
     Route: 048
     Dates: start: 20120801, end: 2012
  2. ATACAND HCT [Suspect]
     Indication: BLOOD PRESSURE ABNORMAL
     Dosage: 16/12.5 MG
     Route: 048
     Dates: end: 20120731
  3. DIURETIC [Suspect]
     Indication: BLOOD PRESSURE ABNORMAL
     Route: 048
     Dates: start: 20120801, end: 2012

REACTIONS (2)
  - Hypertension [Recovered/Resolved]
  - Drug effect incomplete [Unknown]
